FAERS Safety Report 13430319 (Version 1)
Quarter: 2017Q2

REPORT INFORMATION
  Report Type: Report from Study
  Country: IN (occurrence: IN)
  Receive Date: 20170412
  Receipt Date: 20170412
  Transmission Date: 20170912
  Serious: Yes (Hospitalization, Other)
  Sender: FDA-Public Use
  Company Number: IN-JNJFOC-20160702613

PATIENT
  Age: 67 Year
  Sex: Male
  Weight: 73.6 kg

DRUGS (6)
  1. CREMAFFIN [Concomitant]
     Indication: CONSTIPATION
     Route: 048
     Dates: start: 20120123
  2. GLIMEPIRIDE [Concomitant]
     Route: 065
     Dates: start: 20141212
  3. PLACEBO [Suspect]
     Route: 048
  4. ATORVASTATIN [Concomitant]
     Active Substance: ATORVASTATIN
     Indication: CORONARY ARTERY DISEASE
     Dosage: AT BEDTIME
     Route: 048
     Dates: start: 20141212
  5. ASPIRIN. [Concomitant]
     Active Substance: ASPIRIN
     Indication: CORONARY ARTERY DISEASE
     Dosage: AT BEDTIME
     Route: 048
     Dates: start: 20120123
  6. METFORMIN [Concomitant]
     Route: 065
     Dates: start: 20141212

REACTIONS (2)
  - Coronary artery disease [Recovered/Resolved with Sequelae]
  - Peripheral arterial occlusive disease [Not Recovered/Not Resolved]

NARRATIVE: CASE EVENT DATE: 20160615
